FAERS Safety Report 7803330-6 (Version None)
Quarter: 2011Q4

REPORT INFORMATION
  Report Type: 
  Country: None (occurrence: None)
  Receive Date: 20111007
  Receipt Date: 20110928
  Transmission Date: 20120403
  Serious: Yes (Other)
  Sender: FDA-Public Use
  Company Number: US-ROCHE-512843

PATIENT
  Sex: Female
  Weight: 65.8 kg

DRUGS (18)
  1. ACCUTANE [Suspect]
     Indication: ACNE CYSTIC
     Dosage: REPORTED AS 40MG OD
     Route: 048
  2. ORTHO TRI-CYCLEN [Concomitant]
     Indication: CONTRACEPTION
  3. SULFAMETHOXAZOLE AND TRIMETHOPRIM [Concomitant]
     Indication: ACNE
  4. SULFAMETHOXAZOLE AND TRIMETHOPRIM [Concomitant]
  5. DERMATOLOGIC AGENT NOS [Concomitant]
  6. CLINDAMYCIN LOTION [Concomitant]
  7. CLEOCIN T [Concomitant]
     Indication: ACNE
  8. PLEXION [Concomitant]
     Indication: ACNE
  9. DOXYCYCLINE [Concomitant]
     Indication: ACNE
  10. METROCREAM [Concomitant]
     Indication: ACNE
  11. PREVACID [Concomitant]
  12. ACCUTANE [Suspect]
     Dosage: REPORTED AS 40MG BID ALTERNATING WITH 40 MG OD
     Route: 048
     Dates: start: 20030609, end: 20031019
  13. MINOCYCLINE HCL [Concomitant]
     Indication: ACNE
  14. ERYTHROMYCIN [Concomitant]
  15. SULFAMETHOXAZOLE AND TRIMETHOPRIM [Concomitant]
  16. CLEOCIN T [Concomitant]
  17. CLINDAMYCIN [Concomitant]
     Indication: ACNE
  18. RETIN-A [Concomitant]

REACTIONS (20)
  - COLITIS ULCERATIVE [None]
  - DEPRESSION [None]
  - IRRITABLE BOWEL SYNDROME [None]
  - ADENOMA BENIGN [None]
  - OVARIAN CYST [None]
  - ADNEXA UTERI MASS [None]
  - INFLAMMATORY BOWEL DISEASE [None]
  - GASTROINTESTINAL DISORDER [None]
  - MYOSITIS [None]
  - ROAD TRAFFIC ACCIDENT [None]
  - BACK PAIN [None]
  - HEPATIC CYST [None]
  - MYALGIA [None]
  - PAIN [None]
  - DRY SKIN [None]
  - CROHN'S DISEASE [None]
  - MOUTH CYST [None]
  - PROCTITIS [None]
  - SCOLIOSIS [None]
  - COLITIS [None]
